FAERS Safety Report 7990549-7 (Version None)
Quarter: 2011Q4

REPORT INFORMATION
  Report Type: 
  Country: None (occurrence: None)
  Receive Date: 20111219
  Receipt Date: 20111010
  Transmission Date: 20120403
  Serious: No
  Sender: FDA-Public Use
  Company Number: US-ASTRAZENECA-2011SE60719

PATIENT
  Age: 59 Year
  Sex: Female
  Weight: 58.5 kg

DRUGS (3)
  1. CRESTOR [Suspect]
     Indication: BLOOD CHOLESTEROL ABNORMAL
     Route: 048
     Dates: start: 20080101
  2. SINGULAIR [Concomitant]
  3. ADVIR [Concomitant]

REACTIONS (4)
  - LACRIMATION INCREASED [None]
  - COELIAC DISEASE [None]
  - WEIGHT DECREASED [None]
  - DYSPNOEA [None]
